FAERS Safety Report 4775286-4 (Version None)
Quarter: 2005Q3

REPORT INFORMATION
  Report Type: 
  Country: None (occurrence: None)
  Receive Date: 20050921
  Receipt Date: 20050921
  Transmission Date: 20060218
  Serious: Yes (Other)
  Sender: FDA-Public Use
  Company Number: None

PATIENT
  Age: 76 Year
  Sex: Male
  Weight: 49 kg

DRUGS (2)
  1. VANCOMYCIN [Suspect]
     Indication: LEG AMPUTATION
     Dosage: 850 MG IVPB DAILY
     Route: 042
     Dates: start: 20050902, end: 20050917
  2. VANCOMYCIN [Suspect]
     Indication: POSTOPERATIVE INFECTION
     Dosage: 850 MG IVPB DAILY
     Route: 042
     Dates: start: 20050902, end: 20050917

REACTIONS (1)
  - MYALGIA [None]
